FAERS Safety Report 8052570-2 (Version None)
Quarter: 2012Q1

REPORT INFORMATION
  Report Type: 
  Country: None (occurrence: None)
  Receive Date: 20120111
  Receipt Date: 20111223
  Transmission Date: 20120608
  Serious: Yes (Other)
  Sender: FDA-Public Use
  Company Number: 2011030633

PATIENT
  Age: 32 Year

DRUGS (2)
  1. RHOPHYLAC [Suspect]
     Indication: PROPHYLAXIS AGAINST RH ISOIMMUNISATION
     Dates: start: 20110501
  2. RHOPHYLAC [Suspect]
     Indication: PROPHYLAXIS AGAINST RH ISOIMMUNISATION
     Dates: start: 20110901

REACTIONS (4)
  - TACHYCARDIA [None]
  - PALPITATIONS [None]
  - MATERNAL EXPOSURE DURING PREGNANCY [None]
  - MALAISE [None]
